FAERS Safety Report 5107675-2 (Version None)
Quarter: 2006Q3

REPORT INFORMATION
  Report Type: 
  Country: None (occurrence: None)
  Receive Date: 20060919
  Receipt Date: 20060913
  Transmission Date: 20061208
  Serious: Yes (Hospitalization, Other)
  Sender: FDA-Public Use
  Company Number: SE-BAYER-200614096GDS

PATIENT
  Age: 82 Year
  Sex: Male

DRUGS (2)
  1. ADALAT [Suspect]
     Indication: HYPERTENSION
     Route: 048
  2. PLENDIL [Suspect]
     Indication: HYPERTENSION
     Route: 048

REACTIONS (2)
  - FALL [None]
  - HYPOTENSION [None]
